FAERS Safety Report 9698002 (Version 2)
Quarter: 2013Q4

REPORT INFORMATION
  Report Type: Spontaneous
  Country: KR (occurrence: None)
  Receive Date: 20131118
  Receipt Date: 20131125
  Transmission Date: 20140711
  Serious: Yes (Other)
  Sender: FDA-Public Use
  Company Number: 2013318244

PATIENT
  Age: 77 Year
  Sex: Female
  Weight: 52.8 kg

DRUGS (2)
  1. DALTEPARIN SODIUM [Suspect]
     Indication: ANTICOAGULANT THERAPY
     Dosage: 150 IU/KG, UNK, SUBCUTANEOUS
     Route: 058
  2. WARFARIN (WARFARIN) [Concomitant]

REACTIONS (3)
  - Pelvic haematoma [None]
  - Abdominal wall haematoma [None]
  - Abdominal pain [None]
